FAERS Safety Report 21789481 (Version 1)
Quarter: 2022Q4

REPORT INFORMATION
  Report Type: Spontaneous
  Country: US (occurrence: None)
  Receive Date: 20221227
  Receipt Date: 20221227
  Transmission Date: 20230113
  Serious: No
  Sender: FDA-Public Use
  Company Number: None

PATIENT

DRUGS (2)
  1. LANREOTIDE [Suspect]
     Active Substance: LANREOTIDE
  2. COSMETICS [Suspect]
     Active Substance: COSMETICS

REACTIONS (3)
  - Device difficult to use [None]
  - Device connection issue [None]
  - Injection site pain [None]
